FAERS Safety Report 21227820 (Version 1)
Quarter: 2022Q3

REPORT INFORMATION
  Report Type: Spontaneous
  Country: US (occurrence: None)
  Receive Date: 20220817
  Receipt Date: 20220817
  Transmission Date: 20221027
  Serious: Yes (Hospitalization)
  Sender: FDA-Public Use
  Company Number: None

PATIENT
  Age: 2 Year
  Sex: Female

DRUGS (1)
  1. KANUMA [Suspect]
     Active Substance: SEBELIPASE ALFA
     Indication: Lipid metabolism disorder
     Dosage: FREQUENCY : WEEKLY;?
     Route: 042
     Dates: start: 20220211

REACTIONS (2)
  - Vascular device infection [None]
  - Staphylococcal infection [None]

NARRATIVE: CASE EVENT DATE: 20220814
